FAERS Safety Report 19401676 (Version 1)
Quarter: 2021Q2

REPORT INFORMATION
  Report Type: Spontaneous
  Country: US (occurrence: US)
  Receive Date: 20210610
  Receipt Date: 20210610
  Transmission Date: 20210717
  Serious: Yes (Other)
  Sender: FDA-Public Use
  Company Number: US-GLAXOSMITHKLINE-US2021GSK125932

PATIENT
  Sex: Female

DRUGS (5)
  1. RANITIDINE. [Suspect]
     Active Substance: RANITIDINE
     Indication: ULCER HAEMORRHAGE
     Dosage: UNK UNK, QD
     Route: 065
     Dates: end: 2011
  2. ZANTAC [Suspect]
     Active Substance: RANITIDINE HYDROCHLORIDE
     Indication: ULCER HAEMORRHAGE
     Dosage: UNK UNK, QD
     Route: 065
     Dates: start: 198707, end: 201107
  3. ZANTAC [Suspect]
     Active Substance: RANITIDINE HYDROCHLORIDE
     Indication: ULCER HAEMORRHAGE
     Dosage: UNK UNK, QD
     Route: 065
     Dates: start: 198707, end: 201107
  4. RANITIDINE CAPSULE [Suspect]
     Active Substance: RANITIDINE
     Indication: ULCER HAEMORRHAGE
     Dosage: UNK UNK, QD
     Route: 065
     Dates: start: 198707, end: 201107
  5. RANITIDINE. [Suspect]
     Active Substance: RANITIDINE
     Indication: ULCER HAEMORRHAGE
     Dosage: UNK, QD
     Route: 065
     Dates: end: 2011

REACTIONS (1)
  - Breast cancer [Unknown]
